FAERS Safety Report 17755514 (Version 3)
Quarter: 2020Q3

REPORT INFORMATION
  Report Type: Spontaneous
  Country: GB (occurrence: GB)
  Receive Date: 20200507
  Receipt Date: 20200821
  Transmission Date: 20201102
  Serious: Yes (Death, Other)
  Sender: FDA-Public Use
  Company Number: GB-SA-2020SA117977

PATIENT

DRUGS (2)
  1. CABLIVI [Suspect]
     Active Substance: CAPLACIZUMAB-YHDP
     Dosage: UNK
     Route: 065
     Dates: start: 20200423
  2. HEPARIN [Concomitant]
     Active Substance: HEPARIN SODIUM
     Dosage: 500 U, BID
     Route: 065

REACTIONS (6)
  - Cardiac arrest [Fatal]
  - Haemoglobin decreased [Fatal]
  - Pulmonary embolism [Fatal]
  - Myocardial infarction [Fatal]
  - Electrocardiogram change [Fatal]
  - Troponin increased [Fatal]

NARRATIVE: CASE EVENT DATE: 2020
